FAERS Safety Report 5471471-7 (Version None)
Quarter: 2007Q3

REPORT INFORMATION
  Report Type: 
  Country: None (occurrence: None)
  Receive Date: 20070928
  Receipt Date: 20061108
  Transmission Date: 20080115
  Serious: Yes (Other)
  Sender: FDA-Public Use
  Company Number: US-BRISTOL-MYERS SQUIBB COMPANY-13570478

PATIENT
  Age: 59 Year
  Sex: Male
  Weight: 107 kg

DRUGS (3)
  1. DEFINITY [Suspect]
     Indication: STRESS ECHOCARDIOGRAM
     Dosage: 1CC OF DEFINITY, DILUTED IN 8.7 CC OF NORMAL SALINE
     Dates: start: 20061108, end: 20061108
  2. LEVITRA [Concomitant]
  3. TESTOSTERONE [Concomitant]

REACTIONS (4)
  - ARTHRALGIA [None]
  - BACK PAIN [None]
  - DYSPNOEA [None]
  - GROIN PAIN [None]
